FAERS Safety Report 25995692 (Version 1)
Quarter: 2025Q4

REPORT INFORMATION
  Report Type: Spontaneous
  Country: UA (occurrence: UA)
  Receive Date: 20251104
  Receipt Date: 20251104
  Transmission Date: 20260117
  Serious: Yes (Hospitalization, Other)
  Sender: TAIHO ONCOLOGY INC
  Company Number: UA-SERVIER-S25011235

PATIENT
  Age: 50 Year
  Sex: Male

DRUGS (2)
  1. LONSURF [Suspect]
     Active Substance: TIPIRACIL HYDROCHLORIDE\TRIFLURIDINE
     Indication: Gastric cancer
     Dosage: 50 MG, BID, START DATE: 04-MAR-2024
     Route: 048
     Dates: end: 202405
  2. LONSURF [Suspect]
     Active Substance: TIPIRACIL HYDROCHLORIDE\TRIFLURIDINE
     Dosage: 50 MG, BID
     Route: 048
     Dates: start: 20240524, end: 20240823

REACTIONS (4)
  - Gastric haemorrhage [Recovered/Resolved]
  - Malignant neoplasm progression [Unknown]
  - Abdominal pain [Recovered/Resolved]
  - Nausea [Recovered/Resolved]

NARRATIVE: CASE EVENT DATE: 20240301
